FAERS Safety Report 11563915 (Version 1)
Quarter: 2015Q3

REPORT INFORMATION
  Report Type: Spontaneous
  Country: FR (occurrence: FR)
  Receive Date: 20150928
  Receipt Date: 20150928
  Transmission Date: 20151125
  Serious: Yes (Hospitalization)
  Sender: FDA-Public Use
  Company Number: FR-SA-2015SA144019

PATIENT
  Age: 83 Year
  Sex: Female

DRUGS (19)
  1. ADALAT [Suspect]
     Active Substance: NIFEDIPINE
     Route: 048
  2. XANAX [Suspect]
     Active Substance: ALPRAZOLAM
     Route: 048
  3. KARDEGIC [Concomitant]
     Active Substance: ASPIRIN LYSINE
  4. PANTOPRAZOLE [Concomitant]
     Active Substance: PANTOPRAZOLE SODIUM
  5. TRIMEBUTINE [Concomitant]
     Active Substance: TRIMEBUTINE
  6. VITAMIN C [Concomitant]
     Active Substance: ASCORBIC ACID
  7. LASILIX [Suspect]
     Active Substance: FUROSEMIDE
     Route: 048
  8. STILNOX [Suspect]
     Active Substance: ZOLPIDEM TARTRATE
     Route: 048
  9. KALEORID [Concomitant]
     Active Substance: POTASSIUM CHLORIDE
  10. CRESTOR [Concomitant]
     Active Substance: ROSUVASTATIN CALCIUM
     Dosage: CRESTOR 5
  11. UVEDOSE [Concomitant]
     Active Substance: CHOLECALCIFEROL
  12. DAFALGAN [Concomitant]
     Active Substance: ACETAMINOPHEN
  13. IRON [Concomitant]
     Active Substance: IRON
  14. TENORMIN [Suspect]
     Active Substance: ATENOLOL
     Route: 048
  15. LYRICA [Suspect]
     Active Substance: PREGABALIN
     Route: 048
  16. LEVOTHYROX [Concomitant]
     Active Substance: LEVOTHYROXINE
  17. MITOSYL [Concomitant]
  18. FOLIC ACID. [Concomitant]
     Active Substance: FOLIC ACID
  19. FLECTOR [Concomitant]
     Active Substance: DICLOFENAC EPOLAMINE

REACTIONS (3)
  - Malaise [Recovered/Resolved]
  - Headache [Recovered/Resolved]
  - Visual impairment [Recovered/Resolved]

NARRATIVE: CASE EVENT DATE: 20150505
